FAERS Safety Report 25817155 (Version 2)
Quarter: 2025Q4

REPORT INFORMATION
  Report Type: Other
  Country: CA (occurrence: CA)
  Receive Date: 20250918
  Receipt Date: 20251009
  Transmission Date: 20260118
  Serious: Yes (Other)
  Sender: APOTEX
  Company Number: CA-APOTEX-2024AP010684

PATIENT
  Sex: Male

DRUGS (2)
  1. IMATINIB [Suspect]
     Active Substance: IMATINIB
     Indication: Gastrointestinal stromal tumour
     Dosage: 400 MILLIGRAM, QD
     Route: 048
     Dates: start: 20230930, end: 2024
  2. IMATINIB [Suspect]
     Active Substance: IMATINIB
     Indication: Off label use

REACTIONS (3)
  - Malignant neoplasm progression [Unknown]
  - Product substitution issue [Unknown]
  - Drug ineffective [Unknown]
